FAERS Safety Report 8863434 (Version 1)
Quarter: 2012Q4

REPORT INFORMATION
  Report Type: 
  Country: US (occurrence: US)
  Receive Date: 20121024
  Receipt Date: 20121024
  Transmission Date: 20130627
  Serious: No
  Sender: FDA-Public Use
  Company Number: US-AMGEN-USASP2011062714

PATIENT
  Age: 53 Year
  Sex: Male
  Weight: 99.77 kg

DRUGS (4)
  1. ENBREL [Suspect]
     Indication: PRODUCT USED FOR UNKNOWN INDICATION
     Dosage: 50 mg, qwk
     Route: 058
  2. PRAVASTATIN [Concomitant]
     Dosage: 10 mg, UNK
  3. VITAMIN C                          /00008001/ [Concomitant]
     Dosage: 1000 mg, UNK
  4. MULTIVITAMIN                       /00097801/ [Concomitant]

REACTIONS (1)
  - Injection site pain [Unknown]
